FAERS Safety Report 10221946 (Version 2)
Quarter: 2014Q2

REPORT INFORMATION
  Report Type: Spontaneous
  Country: BR (occurrence: BR)
  Receive Date: 20140606
  Receipt Date: 20140606
  Transmission Date: 20141212
  Serious: Yes (Other)
  Sender: FDA-Public Use
  Company Number: BR-BIOMARINAP-BR-2013-100281

PATIENT
  Age: 11 Year
  Sex: Female
  Weight: 21 kg

DRUGS (1)
  1. NAGLAZYME [Suspect]
     Indication: MUCOPOLYSACCHARIDOSIS VI
     Dosage: 20 MG, QW
     Route: 042
     Dates: start: 20100407

REACTIONS (3)
  - Tremor [Recovered/Resolved]
  - Chills [Recovered/Resolved]
  - Cyanosis [Recovered/Resolved]
